FAERS Safety Report 8895279 (Version 2)
Quarter: 2012Q4

REPORT INFORMATION
  Report Type: 
  Country: US (occurrence: US)
  Receive Date: 20121108
  Receipt Date: 20121211
  Transmission Date: 20130627
  Serious: Yes (Other)
  Sender: FDA-Public Use
  Company Number: US-JNJFOC-20121103148

PATIENT
  Age: 30 Year
  Sex: Female
  Weight: 65.77 kg

DRUGS (11)
  1. SIMPONI [Suspect]
     Indication: ANKYLOSING SPONDYLITIS
     Route: 058
     Dates: start: 2011
  2. TIZANIDINE [Concomitant]
     Indication: SLEEP DISORDER
     Route: 048
     Dates: start: 2007
  3. IBUPROFEN [Concomitant]
     Indication: PAIN
     Route: 048
     Dates: start: 2007
  4. VALIUM [Concomitant]
     Indication: FIBROMYALGIA
     Route: 048
     Dates: start: 2007
  5. VALIUM [Concomitant]
     Indication: MUSCLE SPASMS
     Route: 048
     Dates: start: 2007
  6. VALIUM [Concomitant]
     Indication: ANXIETY
     Route: 048
     Dates: start: 2007
  7. SEROQUEL [Concomitant]
     Indication: SLEEP DISORDER
     Route: 048
     Dates: start: 2007
  8. PROZAC [Concomitant]
     Indication: ANTIDEPRESSANT THERAPY
     Route: 048
     Dates: start: 2007
  9. PROZAC [Concomitant]
     Indication: INSOMNIA
     Route: 048
     Dates: start: 2007
  10. HYDROCODONE [Concomitant]
     Indication: PAIN
     Dosage: 10/325 mg
     Route: 048
     Dates: start: 2006
  11. ULTRAM [Concomitant]
     Indication: PAIN
     Route: 048
     Dates: start: 2007

REACTIONS (5)
  - Hypothyroidism [Not Recovered/Not Resolved]
  - Adrenal insufficiency [Not Recovered/Not Resolved]
  - Ankylosing spondylitis [Not Recovered/Not Resolved]
  - Drug dose omission [Not Recovered/Not Resolved]
  - Vaginal infection [Recovered/Resolved]
